FAERS Safety Report 8576884-2 (Version None)
Quarter: 2012Q3

REPORT INFORMATION
  Report Type: 
  Country: None (occurrence: None)
  Receive Date: 20120807
  Receipt Date: 20120723
  Transmission Date: 20120928
  Serious: Yes (Other)
  Sender: FDA-Public Use
  Company Number: CN-ASTRAZENECA-2012SE54989

PATIENT
  Sex: Male
  Weight: 65 kg

DRUGS (1)
  1. ESOMEPRAZOLE [Suspect]
     Indication: GASTRIC ULCER
     Route: 048
     Dates: start: 20100913, end: 20100913

REACTIONS (1)
  - AUTOIMMUNE THROMBOCYTOPENIA [None]
